FAERS Safety Report 5455737-2 (Version None)
Quarter: 2007Q3

REPORT INFORMATION
  Report Type: 
  Country: None (occurrence: None)
  Receive Date: 20070914
  Receipt Date: 20070905
  Transmission Date: 20080115
  Serious: Yes (Death)
  Sender: FDA-Public Use
  Company Number: 07H-163-0313156-00

PATIENT
  Age: 29 Year
  Sex: Female

DRUGS (6)
  1. PROPOFOL [Suspect]
     Indication: INDUCTION OF ANAESTHESIA
     Dosage: 4 - 12 MG/KG/H, INFUSION
  2. PROPOFOL [Suspect]
     Indication: MAINTENANCE OF ANAESTHESIA
     Dosage: 4 - 12 MG/KG/H, INFUSION
  3. PROPOFOL [Suspect]
     Indication: SEDATIVE THERAPY
     Dosage: 4 - 12 MG/KG/H, INFUSION
  4. NEUROMUSCULAR BLOCKER [Concomitant]
  5. MANNITOL [Concomitant]
  6. EPINEPHRINE [Concomitant]

REACTIONS (7)
  - CIRCULATORY COLLAPSE [None]
  - HAEMODYNAMIC INSTABILITY [None]
  - HYPOTENSION [None]
  - METABOLIC ACIDOSIS [None]
  - NO THERAPEUTIC RESPONSE [None]
  - PROPOFOL INFUSION SYNDROME [None]
  - RHABDOMYOLYSIS [None]
